FAERS Safety Report 12502968 (Version 1)
Quarter: 2016Q2

REPORT INFORMATION
  Report Type: Spontaneous
  Country: HK (occurrence: HK)
  Receive Date: 20160628
  Receipt Date: 20160628
  Transmission Date: 20160815
  Serious: Yes (Hospitalization, Other)
  Sender: FDA-Public Use
  Company Number: HK-SUN PHARMACEUTICAL INDUSTRIES LTD-2016RR-119179

PATIENT
  Age: 56 Year
  Sex: Female

DRUGS (2)
  1. ZOPICLONE [Interacting]
     Active Substance: ZOPICLONE
     Indication: PRODUCT USED FOR UNKNOWN INDICATION
     Dosage: 10 DF, (7.5 MG/TABLET)
     Route: 065
  2. CHLORPHENIRAMINE. [Suspect]
     Active Substance: CHLORPHENIRAMINE
     Indication: PRODUCT USED FOR UNKNOWN INDICATION
     Route: 065

REACTIONS (7)
  - Overdose [Unknown]
  - Drug interaction [Unknown]
  - Sulphaemoglobinaemia [Unknown]
  - Atrial fibrillation [Unknown]
  - Haemolytic anaemia [Unknown]
  - Vomiting [Unknown]
  - Dizziness [Unknown]
